FAERS Safety Report 5145739-8 (Version None)
Quarter: 2006Q4

REPORT INFORMATION
  Report Type: 
  Country: None (occurrence: None)
  Receive Date: 20061102
  Receipt Date: 20061020
  Transmission Date: 20070319
  Serious: Yes (Other)
  Sender: FDA-Public Use
  Company Number: 2006131374

PATIENT
  Age: 68 Year
  Sex: Male

DRUGS (6)
  1. CELEBREX [Suspect]
     Indication: ANKYLOSING SPONDYLITIS
     Dosage: ORAL
     Route: 048
  2. VIOXX [Suspect]
     Indication: ANKYLOSING SPONDYLITIS
  3. NITROGLYCERIN [Concomitant]
  4. ZOCOR [Concomitant]
  5. LIPITOR [Concomitant]
  6. NSAID'S (NSAID'S) [Concomitant]

REACTIONS (4)
  - ANGINA PECTORIS [None]
  - GASTROOESOPHAGEAL REFLUX DISEASE [None]
  - HEADACHE [None]
  - TRACHEAL INFLAMMATION [None]
